FAERS Safety Report 23860532 (Version 1)
Quarter: 2024Q2

REPORT INFORMATION
  Report Type: Report from Study
  Country: BR (occurrence: BR)
  Receive Date: 20240516
  Receipt Date: 20240516
  Transmission Date: 20240715
  Serious: Yes (Hospitalization, Other)
  Sender: FDA-Public Use
  Company Number: BR-LAT-24538681979Ov

PATIENT
  Sex: Female

DRUGS (2)
  1. STELARA [Suspect]
     Active Substance: USTEKINUMAB
     Indication: Colitis ulcerative
     Route: 042
  2. STELARA [Suspect]
     Active Substance: USTEKINUMAB
     Dosage: THIRTEEN PATIENTS(27.7%) NEEDED OPTIMIZATION OF UST TO EVERY 6 WEEKS (N=2) OR EVERY 4 WEEKS (N=11)
     Route: 058

REACTIONS (12)
  - Colitis ulcerative [Unknown]
  - Rash [Unknown]
  - Cavernous sinus thrombosis [Unknown]
  - Prostate cancer [Unknown]
  - Pulmonary embolism [Unknown]
  - Deep vein thrombosis [Unknown]
  - Arthralgia [Unknown]
  - Urinary tract infection [Unknown]
  - Constipation [Unknown]
  - COVID-19 [Unknown]
  - Off label use [Unknown]
  - Drug ineffective [Unknown]
